FAERS Safety Report 20112512 (Version 1)
Quarter: 2021Q4

REPORT INFORMATION
  Report Type: Spontaneous
  Country: US (occurrence: US)
  Receive Date: 20211125
  Receipt Date: 20211125
  Transmission Date: 20220303
  Serious: No
  Sender: FDA-Public Use
  Company Number: US-BTGSP-US-BTGSP-21-0016

PATIENT

DRUGS (1)
  1. CROFAB [Suspect]
     Active Substance: CROTALIDAE POLYVALENT IMMUNE FAB (OVINE)
     Indication: Snake bite
     Dosage: ONE VIAL, SINGLE
     Route: 042
     Dates: start: 202008, end: 202008

REACTIONS (1)
  - Therapeutic response unexpected [Unknown]
